FAERS Safety Report 7281656-5 (Version None)
Quarter: 2011Q1

REPORT INFORMATION
  Report Type: 
  Country: None (occurrence: None)
  Receive Date: 20110128
  Receipt Date: 20101231
  Transmission Date: 20110831
  Serious: Yes (Death)
  Sender: FDA-Public Use
  Company Number: AUR-APL-2011-00111

PATIENT
  Age: 10 Year
  Sex: Male

DRUGS (10)
  1. RISPERIDONE [Suspect]
  2. LORAZEPAM [Suspect]
  3. OMEPRAZOLE [Suspect]
  4. METHYLPHENIDATE [Suspect]
  5. QUETIAPINE [Suspect]
  6. VALPROIC ACID [Suspect]
  7. ATOMOXETINE [Suspect]
  8. ALPRAZOLAM [Suspect]
  9. CLONAZEPAM [Suspect]
  10. LORATADINE [Suspect]

REACTIONS (2)
  - CARDIAC ARREST [None]
  - RESPIRATORY ARREST [None]
